FAERS Safety Report 6662575-1 (Version None)
Quarter: 2010Q1

REPORT INFORMATION
  Report Type: 
  Country: None (occurrence: None)
  Receive Date: 20100329
  Receipt Date: 20100318
  Transmission Date: 20100710
  Serious: Yes (Hospitalization)
  Sender: FDA-Public Use
  Company Number: 2010JP001676

PATIENT
  Sex: Male

DRUGS (1)
  1. PROGRAF [Suspect]
     Indication: COLITIS ULCERATIVE
     Dosage: UNK, ORAL
     Route: 048
     Dates: start: 20091201

REACTIONS (2)
  - LARGE INTESTINAL STRICTURE [None]
  - SCAR [None]
